FAERS Safety Report 8833197 (Version 1)
Quarter: 2012Q4

REPORT INFORMATION
  Report Type: Report from Study
  Country: CA (occurrence: CA)
  Receive Date: 20121010
  Receipt Date: 20121010
  Transmission Date: 20130627
  Serious: Yes (Death, Other)
  Sender: FDA-Public Use
  Company Number: CA-JNJFOC-20120912915

PATIENT
  Age: 33 Year
  Sex: Female
  Weight: 76 kg

DRUGS (4)
  1. REMICADE [Suspect]
     Indication: CROHN^S DISEASE
     Dosage: 15th last dose
     Route: 042
     Dates: start: 20120829
  2. REMICADE [Suspect]
     Indication: CROHN^S DISEASE
     Dosage: 14th dose
     Route: 042
     Dates: start: 20120815
  3. REMICADE [Suspect]
     Indication: CROHN^S DISEASE
     Dosage: 13 doses
     Route: 042
     Dates: start: 20100812, end: 20111214
  4. HUMIRA [Concomitant]
     Indication: CROHN^S DISEASE
     Route: 065
     Dates: start: 2012

REACTIONS (2)
  - Completed suicide [Fatal]
  - Type IV hypersensitivity reaction [Unknown]
